FAERS Safety Report 8993401 (Version 2)
Quarter: 2013Q1

REPORT INFORMATION
  Report Type: Spontaneous
  Country: US (occurrence: US)
  Receive Date: 20130102
  Receipt Date: 20130108
  Transmission Date: 20140127
  Serious: Yes (Other)
  Sender: FDA-Public Use
  Company Number: CHPA2012US025903

PATIENT
  Sex: Female

DRUGS (1)
  1. VOLTAREN GEL [Suspect]
     Indication: NERVE COMPRESSION
     Dosage: UNK, UNK
     Route: 061

REACTIONS (5)
  - Ear infection [Recovered/Resolved]
  - Tinnitus [Recovered/Resolved]
  - Ear pain [Recovered/Resolved]
  - Off label use [Unknown]
  - Drug administered at inappropriate site [Unknown]
